FAERS Safety Report 4558180-3 (Version None)
Quarter: 2005Q1

REPORT INFORMATION
  Report Type: 
  Country: None (occurrence: None)
  Receive Date: 20050103
  Receipt Date: 20041027
  Transmission Date: 20050727
  Serious: Yes (Other)
  Sender: FDA-Public Use
  Company Number: 2004UW22342

PATIENT
  Age: 43 Year
  Sex: Female
  Weight: 97.522 kg

DRUGS (5)
  1. CRESTOR [Suspect]
     Indication: BLOOD CHOLESTEROL INCREASED
     Dosage: 10 MG DAILY PO
     Route: 048
  2. CRESTOR [Suspect]
     Indication: BLOOD CHOLESTEROL INCREASED
     Dosage: 10 MG DAILY PO
     Route: 048
     Dates: start: 20041020
  3. ACIPHEX [Concomitant]
  4. ACCURETIC [Concomitant]
  5. TOPROL-XL [Concomitant]

REACTIONS (2)
  - DYSGEUSIA [None]
  - HEADACHE [None]
